FAERS Safety Report 9636058 (Version 2)
Quarter: 2014Q1

REPORT INFORMATION
  Report Type: Spontaneous
  Country: DE (occurrence: DE)
  Receive Date: 20131021
  Receipt Date: 20140125
  Transmission Date: 20141002
  Serious: Yes (Hospitalization)
  Sender: FDA-Public Use
  Company Number: DE-UCBSA-100478

PATIENT
  Sex: Male
  Weight: 132 kg

DRUGS (2)
  1. KEPPRA [Suspect]
     Indication: EPILEPSY
     Dosage: DAILY DOSE: 750-0-750
     Route: 048
     Dates: end: 20131217
  2. MARCUMAR [Concomitant]
     Indication: THROMBOSIS
     Dosage: UNKNOWN

REACTIONS (1)
  - Thrombocytopenia [Recovering/Resolving]
